FAERS Safety Report 14280294 (Version 1)
Quarter: 2017Q4

REPORT INFORMATION
  Report Type: Spontaneous
  Country: US (occurrence: US)
  Receive Date: 20171212
  Receipt Date: 20171212
  Transmission Date: 20180321
  Serious: Yes (Other)
  Sender: FDA-Public Use
  Company Number: None

PATIENT
  Sex: Male

DRUGS (2)
  1. MELATONIN [Concomitant]
     Active Substance: MELATONIN
  2. METHYLPHENIDATE ER 54 MG TAB (TL709) [Suspect]
     Active Substance: METHYLPHENIDATE
     Indication: ATTENTION DEFICIT/HYPERACTIVITY DISORDER
     Dosage: ?          QUANTITY:30 TABLET(S);?
     Route: 048
     Dates: start: 20171129, end: 20171212

REACTIONS (13)
  - Therapeutic response shortened [None]
  - Insomnia [None]
  - Anxiety [None]
  - Fear [None]
  - Educational problem [None]
  - Drug ineffective [None]
  - Anger [None]
  - Disturbance in attention [None]
  - Frustration tolerance decreased [None]
  - Emotional distress [None]
  - Mania [None]
  - Emotional disorder [None]
  - Product substitution issue [None]

NARRATIVE: CASE EVENT DATE: 20171129
